FAERS Safety Report 9868988 (Version 1)
Quarter: 2014Q1

REPORT INFORMATION
  Report Type: Spontaneous
  Country: FI (occurrence: FI)
  Receive Date: 20140205
  Receipt Date: 20140205
  Transmission Date: 20141002
  Serious: Yes (Other)
  Sender: FDA-Public Use
  Company Number: FI-ROCHE-1341566

PATIENT
  Age: 90 Year
  Sex: Male

DRUGS (1)
  1. AVASTIN [Suspect]
     Indication: AGE-RELATED MACULAR DEGENERATION
     Dosage: LEFT EYE ON 24/JUN/2013 AND 22/JUL/2013, AND TO THE RIGHT EYE ON 08/JUL/2013
     Route: 050
     Dates: start: 20130624, end: 20130722

REACTIONS (2)
  - Brain stem infarction [Recovered/Resolved]
  - Off label use [Unknown]
